FAERS Safety Report 5857883-8 (Version None)
Quarter: 2008Q3

REPORT INFORMATION
  Report Type: 
  Country: None (occurrence: None)
  Receive Date: 20080826
  Receipt Date: 20080715
  Transmission Date: 20090109
  Serious: No
  Sender: FDA-Public Use
  Company Number: US-TEVA-175181USA

PATIENT
  Sex: Female

DRUGS (3)
  1. AZILECT [Suspect]
     Route: 048
  2. SINEMET [Concomitant]
  3. METOPROLOL SUCCINATE [Concomitant]

REACTIONS (3)
  - BACK PAIN [None]
  - MUSCLE SPASMS [None]
  - NECK PAIN [None]
